FAERS Safety Report 9366388 (Version 1)
Quarter: 2013Q2

REPORT INFORMATION
  Report Type: Spontaneous
  Country: US (occurrence: US)
  Receive Date: 20130625
  Receipt Date: 20130625
  Transmission Date: 20140414
  Serious: No
  Sender: FDA-Public Use
  Company Number: US-GLAXOSMITHKLINE-A1020360A

PATIENT
  Age: 55 Year
  Sex: Female

DRUGS (2)
  1. VERAMYST [Suspect]
     Indication: RHINITIS ALLERGIC
     Dosage: 1SPR PER DAY
     Route: 045
     Dates: start: 201004, end: 20130414
  2. ALLERGY RELIEF EYE DROPS (UNSPECIFIED) [Concomitant]

REACTIONS (3)
  - Chest discomfort [Recovering/Resolving]
  - Pain [Recovering/Resolving]
  - Myalgia [Recovering/Resolving]
